FAERS Safety Report 13673745 (Version 2)
Quarter: 2017Q3

REPORT INFORMATION
  Report Type: Report from Study
  Country: None (occurrence: US)
  Receive Date: 20170621
  Receipt Date: 20170825
  Transmission Date: 20171127
  Serious: Yes (Hospitalization, Other)
  Sender: FDA-Public Use
  Company Number: US-ABBVIE-17K-163-2012868-00

PATIENT
  Sex: Male

DRUGS (1)
  1. HUMIRA [Suspect]
     Active Substance: ADALIMUMAB
     Indication: CROHN^S DISEASE
     Route: 058

REACTIONS (7)
  - Postoperative adhesion [Unknown]
  - Cholelithiasis [Unknown]
  - Post procedural inflammation [Unknown]
  - Post procedural complication [Recovering/Resolving]
  - Intestinal obstruction [Recovering/Resolving]
  - Post procedural complication [Unknown]
  - Flatulence [Unknown]

NARRATIVE: CASE EVENT DATE: 2017
